FAERS Safety Report 8585658 (Version 7)
Quarter: 2014Q1

REPORT INFORMATION
  Report Type: Spontaneous
  Country: US (occurrence: US)
  Receive Date: 20120530
  Receipt Date: 20140324
  Transmission Date: 20141002
  Serious: Yes (Other)
  Sender: FDA-Public Use
  Company Number: US-GLAXOSMITHKLINE-A0961846A

PATIENT
  Age: 77 Year
  Sex: Female
  Weight: 76 kg

DRUGS (26)
  1. FLOLAN [Suspect]
     Indication: PULMONARY ARTERIAL HYPERTENSION
     Dosage: 4NGKM SEE DOSAGE TEXT
     Route: 042
     Dates: start: 20120113
  2. AQUA GUARD [Suspect]
     Indication: PRODUCT USED FOR UNKNOWN INDICATION
     Route: 065
  3. LASIX [Concomitant]
     Dosage: 40MG PER DAY
  4. REVATIO [Concomitant]
     Dosage: 40MG THREE TIMES PER DAY
  5. LETAIRIS [Concomitant]
     Dosage: 5MG PER DAY
  6. OXYGEN [Concomitant]
  7. TYLENOL [Concomitant]
     Dosage: 500MG AS REQUIRED
  8. FUROSEMIDE [Concomitant]
     Dosage: 20MG AS REQUIRED
  9. IMODIUM [Concomitant]
     Dosage: 2MG AS REQUIRED
  10. LOVAZA [Concomitant]
     Dosage: 2G TWICE PER DAY
  11. MULTIVITAMIN [Concomitant]
  12. WARFARIN [Concomitant]
     Dosage: 2.5MG AS DIRECTED
  13. HYDROCHLOROTHIAZIDE [Concomitant]
     Dosage: 12.5MG AS REQUIRED
  14. VITAMIN D3 [Concomitant]
     Dosage: 50000UNIT MONTHLY
  15. AMLODIPINE [Concomitant]
     Dosage: 5MG PER DAY
  16. AVAPRO [Concomitant]
     Dosage: 75MG PER DAY
  17. GABAPENTIN [Concomitant]
     Dosage: 1200MG THREE TIMES PER DAY
  18. ACTONEL [Concomitant]
     Dosage: 150MG MONTHLY
  19. CRESTOR [Concomitant]
     Dosage: 20MG PER DAY
  20. OMEPRAZOLE [Concomitant]
     Dosage: 20MG TWICE PER DAY
  21. MAGNESIUM [Concomitant]
     Dosage: 200MG AS DIRECTED
  22. GLUCOSAMINE [Concomitant]
     Dosage: 1500MG PER DAY
  23. CALCIUM [Concomitant]
  24. N-ACETYL-CYSTEINE [Concomitant]
  25. POTASSIUM [Concomitant]
     Dosage: 10MEQ PER DAY
  26. CALTRATE [Concomitant]
     Dosage: 600MG TWICE PER DAY

REACTIONS (10)
  - Knee arthroplasty [Recovering/Resolving]
  - Pain in jaw [Recovered/Resolved]
  - Diarrhoea [Recovered/Resolved]
  - Dizziness [Recovered/Resolved]
  - Fluid retention [Recovered/Resolved]
  - Catheter site haemorrhage [Recovered/Resolved]
  - Skin burning sensation [Recovering/Resolving]
  - Localised infection [Recovering/Resolving]
  - Jaw disorder [Recovering/Resolving]
  - Nasopharyngitis [Unknown]
